FAERS Safety Report 10349615 (Version 1)
Quarter: 2014Q3

REPORT INFORMATION
  Report Type: Report from Study
  Country: NL (occurrence: None)
  Receive Date: 20140728
  Receipt Date: 20140728
  Transmission Date: 20150326
  Serious: Yes (Other)
  Sender: FDA-Public Use
  Company Number: 2003-00254FE

PATIENT
  Age: 66 Year
  Sex: Female

DRUGS (6)
  1. DEVARON [Concomitant]
  2. THYRAX [Concomitant]
  3. CALCICHEW [Concomitant]
     Active Substance: CALCIUM CARBONATE
  4. INHIIN AMSTERDAMSE CHINEFABRIK [Concomitant]
  5. ZOMACTON [Suspect]
     Active Substance: SOMATROPIN
     Indication: BLOOD GROWTH HORMONE DECREASED
     Route: 058
     Dates: start: 20000110, end: 20020117
  6. TAGAMET ORAL [Concomitant]

REACTIONS (1)
  - Neoplasm [None]

NARRATIVE: CASE EVENT DATE: 20020117
